FAERS Safety Report 5318156-5 (Version None)
Quarter: 2007Q2

REPORT INFORMATION
  Report Type: 
  Country: None (occurrence: None)
  Receive Date: 20070507
  Receipt Date: 20070424
  Transmission Date: 20071010
  Serious: Yes (Death)
  Sender: FDA-Public Use
  Company Number: JP-ROCHE-491624

PATIENT
  Age: 87 Year
  Sex: Female

DRUGS (7)
  1. TAMIFLU [Suspect]
     Route: 048
     Dates: start: 20070315, end: 20070315
  2. CLARITHROMYCIN [Concomitant]
     Route: 048
     Dates: start: 20070314, end: 20070314
  3. TRANSAMIN [Concomitant]
     Route: 048
     Dates: start: 20070314, end: 20070314
  4. MUCOSOLVAN [Concomitant]
     Route: 048
     Dates: start: 20070314, end: 20070314
  5. SOLULACT [Concomitant]
     Dosage: TRADE NAME REPORTED AS SOLULACT TMR.GENERIC REPORTED AS LACTATED RINGERS SOLUTION:MALT.
     Route: 041
     Dates: start: 20070315, end: 20070315
  6. SOLCOSERYL [Concomitant]
     Route: 041
     Dates: start: 20070315, end: 20070315
  7. ACETAMINOPHEN [Concomitant]
     Route: 048
     Dates: start: 20070315, end: 20070315

REACTIONS (3)
  - CARDIO-RESPIRATORY ARREST [None]
  - GASTROINTESTINAL HAEMORRHAGE [None]
  - HYPOXIA [None]
